FAERS Safety Report 9514805 (Version 2)
Quarter: 2014Q1

REPORT INFORMATION
  Report Type: Report from Study
  Country: US (occurrence: US)
  Receive Date: 20130911
  Receipt Date: 20140220
  Transmission Date: 20141002
  Serious: Yes (Other)
  Sender: FDA-Public Use
  Company Number: US-ROCHE-1271769

PATIENT
  Age: 47 Year
  Sex: Female

DRUGS (5)
  1. HERCEPTIN [Suspect]
     Indication: BREAST CANCER METASTATIC
     Dosage: 1L DOSE
     Route: 065
  2. PERJETA [Suspect]
     Indication: BREAST CANCER METASTATIC
     Route: 065
  3. KADCYLA [Suspect]
     Indication: BREAST CANCER METASTATIC
     Route: 065
  4. TAXOTERE [Concomitant]
     Dosage: 1L AND ADJUVANT
     Route: 065
  5. NEUPOGEN [Concomitant]
     Indication: FEBRILE NEUTROPENIA

REACTIONS (2)
  - Febrile neutropenia [Unknown]
  - Disease progression [Unknown]
